FAERS Safety Report 9995267 (Version 1)
Quarter: 2014Q1

REPORT INFORMATION
  Report Type: Report from Study
  Country: US (occurrence: US)
  Receive Date: 20140311
  Receipt Date: 20140311
  Transmission Date: 20141002
  Serious: Yes (Death)
  Sender: FDA-Public Use
  Company Number: US-ASTELLAS-2014US002479

PATIENT
  Sex: Female

DRUGS (3)
  1. ERLOTINIB TABLET [Suspect]
     Indication: BREAST CANCER
     Dosage: 150 MG, UID/QD
     Route: 048
     Dates: start: 20101011
  2. GEMZAR [Concomitant]
     Indication: PRODUCT USED FOR UNKNOWN INDICATION
     Dosage: 1 G, UNKNOWN/D
     Route: 065
  3. FASLODEX                           /01503001/ [Concomitant]
     Indication: PRODUCT USED FOR UNKNOWN INDICATION
     Dosage: 125 MG, UNKNOWN/D
     Route: 065

REACTIONS (2)
  - Off label use [Unknown]
  - Death [Fatal]
